FAERS Safety Report 8361091-9 (Version None)
Quarter: 2012Q1

REPORT INFORMATION
  Report Type: 
  Country: None (occurrence: None)
  Receive Date: 20120323
  Receipt Date: 20110621
  Transmission Date: 20120608
  Serious: Yes (Other)
  Sender: FDA-Public Use
  Company Number: 163-21880-11040893

PATIENT
  Age: 61 Year
  Sex: Female

DRUGS (2)
  1. REVLIMID [Suspect]
  2. REVLIMID [Suspect]
     Indication: MULTIPLE MYELOMA
     Dosage: 25 MG, DAILY FOR 21 DAYS, 7 DAYS OFF, PO,12.5 MG, 1 IN 2 D, PO
     Route: 048
     Dates: start: 20110306

REACTIONS (4)
  - RASH GENERALISED [None]
  - APHTHOUS STOMATITIS [None]
  - ORAL HERPES [None]
  - DIARRHOEA [None]
